FAERS Safety Report 7253764-6 (Version None)
Quarter: 2011Q1

REPORT INFORMATION
  Report Type: 
  Country: None (occurrence: None)
  Receive Date: 20110129
  Receipt Date: 20100201
  Transmission Date: 20110831
  Serious: No
  Sender: FDA-Public Use
  Company Number: US-ABBOTT-10P-163-0623695-00

PATIENT
  Sex: Female
  Weight: 83.082 kg

DRUGS (2)
  1. HUMIRA [Suspect]
     Route: 058
  2. HUMIRA [Suspect]
     Indication: PSORIASIS
     Dosage: SKIP 1 DOSE BECAUSE OF COMMON COLD.
     Route: 058
     Dates: end: 20100101

REACTIONS (1)
  - NASOPHARYNGITIS [None]
